FAERS Safety Report 8371585-8 (Version None)
Quarter: 2012Q2

REPORT INFORMATION
  Report Type: 
  Country: None (occurrence: None)
  Receive Date: 20120518
  Receipt Date: 20120504
  Transmission Date: 20120825
  Serious: No
  Sender: FDA-Public Use
  Company Number: US-ASTRAZENECA-2012SE29376

PATIENT
  Age: 58 Year
  Sex: Female

DRUGS (6)
  1. METFORMIN HCL [Concomitant]
  2. ASPIRIN [Concomitant]
  3. LOSARTAN POTASSIUM [Concomitant]
  4. MULTI-VITAMIN [Concomitant]
     Dosage: PER DAY
  5. CALCIUM W VITAMIN D [Concomitant]
     Dosage: 2 TABLETS PER DAY
  6. CRESTOR [Suspect]
     Route: 048

REACTIONS (2)
  - DIABETES MELLITUS [None]
  - SLEEP APNOEA SYNDROME [None]
